FAERS Safety Report 5142494-2 (Version None)
Quarter: 2006Q4

REPORT INFORMATION
  Report Type: 
  Country: None (occurrence: None)
  Receive Date: 20061102
  Receipt Date: 20061016
  Transmission Date: 20070319
  Serious: Yes (Death)
  Sender: FDA-Public Use
  Company Number: FR-SANOFI-SYNTHELABO-F01200602145

PATIENT
  Sex: Male

DRUGS (4)
  1. CALCIUM LEVOFOLINATE [Suspect]
     Indication: COLORECTAL CANCER
     Route: 042
     Dates: start: 20030602, end: 20030602
  2. FLUOROURACIL [Suspect]
     Indication: COLORECTAL CANCER
     Route: 042
     Dates: start: 20030602, end: 20030602
  3. FLUOROURACIL [Suspect]
     Route: 042
     Dates: start: 20030602, end: 20030603
  4. OXALIPLATIN [Suspect]
     Indication: COLORECTAL CANCER
     Route: 042
     Dates: start: 20030602, end: 20030602

REACTIONS (11)
  - BLOOD CULTURE POSITIVE [None]
  - CONVULSION [None]
  - HYPERGLYCAEMIA [None]
  - HYPERKALAEMIA [None]
  - HYPERTHERMIA [None]
  - MENINGITIS BACTERIAL [None]
  - NEUROTOXICITY [None]
  - PARAESTHESIA [None]
  - PLATELET COUNT DECREASED [None]
  - PNEUMOCOCCAL INFECTION [None]
  - SEPSIS [None]
